FAERS Safety Report 12619566 (Version 1)
Quarter: 2016Q3

REPORT INFORMATION
  Report Type: Report from Study
  Country: BR (occurrence: BR)
  Receive Date: 20160803
  Receipt Date: 20160803
  Transmission Date: 20161109
  Serious: Yes (Other)
  Sender: FDA-Public Use
  Company Number: PHHY2016BR105386

PATIENT
  Sex: Male
  Weight: 95 kg

DRUGS (2)
  1. FORASEQ [Suspect]
     Active Substance: BUDESONIDE\FORMOTEROL FUMARATE
     Indication: PNEUMONIA
  2. FORASEQ [Suspect]
     Active Substance: BUDESONIDE\FORMOTEROL FUMARATE
     Indication: BRONCHOSPASM
     Dosage: 2 DF (BUDESONIDE 12 UG, FORMOTEROL FUMARATE 200 UG), QD (USUALLY PERFORMS 1 ASPIRATION)
     Route: 055

REACTIONS (4)
  - Memory impairment [Unknown]
  - Macular degeneration [Recovering/Resolving]
  - Bronchial disorder [Unknown]
  - Visual impairment [Unknown]
